FAERS Safety Report 6268107-4 (Version None)
Quarter: 2009Q3

REPORT INFORMATION
  Report Type: 
  Country: None (occurrence: None)
  Receive Date: 20090715
  Receipt Date: 20090708
  Transmission Date: 20100115
  Serious: Yes (Hospitalization)
  Sender: FDA-Public Use
  Company Number: GB-BIOGENIDEC-2009BI017836

PATIENT

DRUGS (10)
  1. TYSABRI [Suspect]
     Indication: DRUG USE FOR UNKNOWN INDICATION
     Dates: start: 20080601
  2. PREMARIN [Concomitant]
  3. SUMATRIPTAN SUCCINATE [Concomitant]
  4. ROSUVASTATIN [Concomitant]
  5. TROSPIUM [Concomitant]
  6. PROPANALOL [Concomitant]
  7. CITALOPRAM HYDROBROMIDE [Concomitant]
  8. TIZANIDINE HCL [Concomitant]
  9. OMEPRAZOL [Concomitant]
  10. CARBAMAZEPINE [Concomitant]

REACTIONS (1)
  - FOOD POISONING [None]
